FAERS Safety Report 12428609 (Version 1)
Quarter: 2016Q2

REPORT INFORMATION
  Report Type: Spontaneous
  Country: US (occurrence: US)
  Receive Date: 20160602
  Receipt Date: 20160602
  Transmission Date: 20160815
  Serious: No
  Sender: FDA-Public Use
  Company Number: US-BAUSCH-BL-2015-023718

PATIENT
  Sex: Female
  Weight: 68.1 kg

DRUGS (11)
  1. BIOIDENTICAL ESTRADIOL CREAM [Concomitant]
     Indication: HORMONE REPLACEMENT THERAPY
     Dosage: APPLY IN THE AM
     Route: 061
     Dates: start: 2015
  2. PROBIOTIC [Concomitant]
     Active Substance: PROBIOTICS NOS
     Indication: SUPPLEMENTATION THERAPY
     Route: 048
  3. BIOIDENTICAL ESTRADIOL CREAM [Concomitant]
     Indication: HORMONE REPLACEMENT THERAPY
  4. VITAMIN B COMPLEX [Concomitant]
     Active Substance: CYANOCOBALAMIN\DEXPANTHENOL\NIACINAMIDE\PYRIDOXINE HYDROCHLORIDE\RIBOFLAVIN 5^-PHOSPHATE SODIUM\THIAMINE HYDROCHLORIDE\VITAMIN B COMPLEX
     Indication: VITAMIN SUPPLEMENTATION
     Route: 060
  5. BIOIDENTICAL PROGESTERONE CREAM [Concomitant]
     Indication: HORMONE REPLACEMENT THERAPY
     Dosage: APPLY AT NIGHT
     Route: 061
     Dates: start: 2015
  6. MAGNESIUM [Concomitant]
     Active Substance: MAGNESIUM
     Indication: MINERAL SUPPLEMENTATION
     Route: 048
  7. ELIDEL [Suspect]
     Active Substance: PIMECROLIMUS
     Indication: DERMATITIS ATOPIC
     Dosage: USED ONLY 1 TIME
     Route: 061
     Dates: start: 20151008, end: 20151008
  8. BIOIDENTICAL ESTRADIOL CREAM [Concomitant]
     Indication: HORMONE REPLACEMENT THERAPY
  9. BIOIDENTICAL PROGESTERONE CREAM [Concomitant]
     Indication: HORMONE REPLACEMENT THERAPY
  10. FISH OIL [Concomitant]
     Active Substance: FISH OIL
     Indication: SUPPLEMENTATION THERAPY
     Route: 048
  11. BIOIDENTICAL PROGESTERONE CREAM [Concomitant]
     Indication: HORMONE REPLACEMENT THERAPY

REACTIONS (5)
  - Lacrimation increased [Recovered/Resolved]
  - Sneezing [Recovered/Resolved]
  - Burning sensation [Recovered/Resolved]
  - Throat tightness [Recovered/Resolved]
  - Erythema [Recovered/Resolved]

NARRATIVE: CASE EVENT DATE: 20151008
